FAERS Safety Report 4388130-4 (Version None)
Quarter: 2004Q2

REPORT INFORMATION
  Report Type: 
  Country: None (occurrence: None)
  Receive Date: 20040625
  Receipt Date: 20040616
  Transmission Date: 20050107
  Serious: Yes (Hospitalization)
  Sender: FDA-Public Use
  Company Number: FABR-10623

PATIENT
  Age: 54 Year
  Sex: Male
  Weight: 108 kg

DRUGS (8)
  1. FABRAZYME [Suspect]
     Indication: FABRY'S DISEASE
     Dosage: 105 MG Q2WKS IV
     Route: 036
     Dates: start: 20040101, end: 20040318
  2. CYCLOSPORINE [Concomitant]
  3. CELLCEPT [Concomitant]
  4. FOLTX [Concomitant]
  5. PREDNISONE [Concomitant]
  6. ALLOPURINOL [Concomitant]
  7. VASOTEC [Concomitant]
  8. COUMADIN [Concomitant]

REACTIONS (2)
  - ARTHRITIS [None]
  - PAIN IN EXTREMITY [None]
